FAERS Safety Report 7349095-6 (Version None)
Quarter: 2011Q1

REPORT INFORMATION
  Report Type: 
  Country: None (occurrence: None)
  Receive Date: 20110303
  Receipt Date: 20110208
  Transmission Date: 20110831
  Serious: Yes (Hospitalization)
  Sender: FDA-Public Use
  Company Number: 54973 AE # 367

PATIENT
  Age: 2 Year

DRUGS (3)
  1. HYLAND'S COLD 'N COUGH 4 KIDS [Suspect]
     Indication: COUGH
     Dosage: 2 DOSES 2X/ENTIRE BTTL
  2. HYLAND'S COLD 'N COUGH 4 KIDS [Suspect]
     Indication: RHINORRHOEA
     Dosage: 2 DOSES 2X/ENTIRE BTTL
  3. HYLAND'S COLD 'N COUGH 4 KIDS [Suspect]
     Indication: SNEEZING
     Dosage: 2 DOSES 2X/ENTIRE BTTL

REACTIONS (8)
  - LETHARGY [None]
  - ELECTROLYTE IMBALANCE [None]
  - POISONING [None]
  - PCO2 DECREASED [None]
  - SLUGGISHNESS [None]
  - BLOOD SODIUM DECREASED [None]
  - ACCIDENTAL DRUG INTAKE BY CHILD [None]
  - PALLOR [None]
